FAERS Safety Report 5962318-0 (Version None)
Quarter: 2008Q4

REPORT INFORMATION
  Report Type: 
  Country: None (occurrence: None)
  Receive Date: 20081119
  Receipt Date: 20080808
  Transmission Date: 20090506
  Serious: No
  Sender: FDA-Public Use
  Company Number: WAES 0808USA01668

PATIENT
  Age: 53 Year
  Sex: Male

DRUGS (3)
  1. JANUVIA [Suspect]
     Indication: TYPE 2 DIABETES MELLITUS
     Dosage: 50 MG/DAILY/PO
     Route: 048
     Dates: start: 20080716, end: 20080807
  2. AMARYL [Concomitant]
  3. METFORMIN [Concomitant]

REACTIONS (4)
  - ABDOMINAL DISTENSION [None]
  - LACTIC ACIDOSIS [None]
  - LETHARGY [None]
  - URTICARIA [None]
